FAERS Safety Report 12282422 (Version 1)
Quarter: 2016Q2

REPORT INFORMATION
  Report Type: Spontaneous
  Country: US (occurrence: US)
  Receive Date: 20160419
  Receipt Date: 20160419
  Transmission Date: 20160815
  Serious: No
  Sender: FDA-Public Use
  Company Number: US-DUCHESNAY INC.-1050723

PATIENT
  Age: 20 Year
  Sex: Female

DRUGS (2)
  1. DICLEGIS [Suspect]
     Active Substance: DOXYLAMINE SUCCINATE\PYRIDOXINE HYDROCHLORIDE
     Route: 065
     Dates: start: 20150824
  2. PRENATAL VITAMINS (UNSPECIFIED) [Concomitant]

REACTIONS (1)
  - Drug screen false positive [Unknown]

NARRATIVE: CASE EVENT DATE: 20160307
